FAERS Safety Report 26113245 (Version 2)
Quarter: 2025Q4

REPORT INFORMATION
  Report Type: Spontaneous
  Country: EU (occurrence: EU)
  Receive Date: 20251202
  Receipt Date: 20251209
  Transmission Date: 20260117
  Serious: Yes (Other)
  Sender: MYLAN
  Company Number: EU-002147023-NVSC2025PL055643

PATIENT
  Age: 53 Year
  Sex: Male

DRUGS (3)
  1. IMATINIB [Suspect]
     Active Substance: IMATINIB
     Indication: Chronic myeloid leukaemia
     Dosage: 400 MILLIGRAM
  2. IMATINIB [Suspect]
     Active Substance: IMATINIB
     Dosage: UNK
  3. NILOTINIB [Concomitant]
     Active Substance: NILOTINIB
     Indication: Chronic myeloid leukaemia
     Dosage: UNK

REACTIONS (15)
  - Neutropenia [Unknown]
  - Exercise tolerance decreased [Unknown]
  - Anaemia [Unknown]
  - Myalgia [Unknown]
  - Arthralgia [Unknown]
  - Rash erythematous [Unknown]
  - Dermatitis [Unknown]
  - Asthenia [Unknown]
  - Rash maculo-papular [Unknown]
  - Weight fluctuation [Unknown]
  - Rash [Unknown]
  - Dermatitis [Unknown]
  - Weight decreased [Unknown]
  - Purpura [Unknown]
  - Weight increased [Unknown]

NARRATIVE: CASE EVENT DATE: 20220101
